FAERS Safety Report 13549875 (Version 1)
Quarter: 2017Q2

REPORT INFORMATION
  Report Type: Spontaneous
  Country: GB (occurrence: GB)
  Receive Date: 20170509
  Receipt Date: 20170509
  Transmission Date: 20170830
  Serious: Yes (Other)
  Sender: FDA-Public Use
  Company Number: GB-DEXPHARM-20170633

PATIENT
  Age: 67 Year
  Sex: Male
  Weight: 78.01 kg

DRUGS (7)
  1. IBUPROFEN. [Concomitant]
     Active Substance: IBUPROFEN
  2. VITAMIN C [Concomitant]
     Active Substance: ASCORBIC ACID
  3. VITAMIN D [Concomitant]
     Active Substance: CHOLECALCIFEROL
  4. TURMERIC [Concomitant]
     Active Substance: HERBALS\TURMERIC
  5. OMEPRAZOLE. [Suspect]
     Active Substance: OMEPRAZOLE
     Indication: DYSPHAGIA
     Dosage: DAILY DOSE: 20 MG MILLGRAM(S) EVERY DAYS
     Route: 048
     Dates: start: 20170321, end: 20170331
  6. PARACETAMOL [Concomitant]
     Active Substance: ACETAMINOPHEN
  7. GLUCOSAMINE WITH CHONDROITIN [Concomitant]

REACTIONS (5)
  - Arthralgia [Recovering/Resolving]
  - Lethargy [Recovering/Resolving]
  - Muscular weakness [Recovering/Resolving]
  - Eye infection [Recovered/Resolved]
  - Myalgia [Recovering/Resolving]

NARRATIVE: CASE EVENT DATE: 20170326
